FAERS Safety Report 8467814-2 (Version None)
Quarter: 2012Q2

REPORT INFORMATION
  Report Type: 
  Country: None (occurrence: None)
  Receive Date: 20120626
  Receipt Date: 20120620
  Transmission Date: 20120825
  Serious: Yes (Hospitalization)
  Sender: FDA-Public Use
  Company Number: US-GLAXOSMITHKLINE-A0875684A

PATIENT
  Age: 64 Year
  Sex: Male
  Weight: 102.3 kg

DRUGS (1)
  1. AVANDIA [Suspect]
     Indication: DIABETES MELLITUS
     Dosage: 8MG PER DAY
     Dates: start: 20040706, end: 20070713

REACTIONS (3)
  - CARDIAC DISORDER [None]
  - ACUTE MYOCARDIAL INFARCTION [None]
  - CORONARY ARTERY BYPASS [None]
